FAERS Safety Report 7410019-4 (Version None)
Quarter: 2011Q2

REPORT INFORMATION
  Report Type: 
  Country: None (occurrence: None)
  Receive Date: 20110412
  Receipt Date: 20110406
  Transmission Date: 20111010
  Serious: Yes (Other)
  Sender: FDA-Public Use
  Company Number: CHNY2007GB02747

PATIENT
  Age: 59 Year
  Sex: Male

DRUGS (2)
  1. NICOTINE [Suspect]
     Indication: DRUG WITHDRAWAL MAINTENANCE THERAPY
     Dosage: 2-4 MG
  2. NICOTINE [Suspect]
     Dosage: DOSE DOUBLED

REACTIONS (2)
  - TRANSIENT ISCHAEMIC ATTACK [None]
  - INCORRECT DOSE ADMINISTERED [None]
